FAERS Safety Report 5291504-0 (Version None)
Quarter: 2007Q2

REPORT INFORMATION
  Report Type: 
  Country: None (occurrence: None)
  Receive Date: 20070403
  Receipt Date: 20070321
  Transmission Date: 20071010
  Serious: Yes (Other)
  Sender: FDA-Public Use
  Company Number: T200700331

PATIENT
  Age: 58 Year
  Sex: Female

DRUGS (2)
  1. ULTRA-TECHNEKOW [Suspect]
     Indication: HEPATOBILIARY SCAN
     Dosage: SINGLE, INTRAVENOUS
     Route: 042
     Dates: start: 20070226, end: 20070226
  2. CHOLETEC [Suspect]
     Indication: HEPATOBILIARY SCAN
     Dosage: SINGLE, INTRAVENOUS
     Route: 042
     Dates: start: 20070226, end: 20070226

REACTIONS (4)
  - LETHARGY [None]
  - MALAISE [None]
  - NIGHT SWEATS [None]
  - PYREXIA [None]
